FAERS Safety Report 4372243-7 (Version None)
Quarter: 2004Q2

REPORT INFORMATION
  Report Type: 
  Country: None (occurrence: None)
  Receive Date: 20040602
  Receipt Date: 20040521
  Transmission Date: 20050107
  Serious: Yes (Other)
  Sender: FDA-Public Use
  Company Number: GB-JNJFOC-20040504622

PATIENT
  Age: 42 Year
  Sex: Male
  Weight: 84 kg

DRUGS (1)
  1. REMICADE [Suspect]
     Dosage: 250 MG, INTRAVENOUS
     Route: 042

REACTIONS (3)
  - FEELING HOT [None]
  - INFUSION RELATED REACTION [None]
  - RESPIRATORY DISORDER [None]
